FAERS Safety Report 8588767-2 (Version None)
Quarter: 2012Q3

REPORT INFORMATION
  Report Type: 
  Country: None (occurrence: None)
  Receive Date: 20120813
  Receipt Date: 20120809
  Transmission Date: 20120928
  Serious: Yes (Other)
  Sender: FDA-Public Use
  Company Number: PHHY2012AR069324

PATIENT
  Sex: Female

DRUGS (1)
  1. DIOVAN [Suspect]
     Indication: ARTERIAL DISORDER
     Dosage: 80 MG, UNK

REACTIONS (5)
  - MENTAL DISORDER [None]
  - ARRHYTHMIA [None]
  - DEATH OF RELATIVE [None]
  - FATIGUE [None]
  - MEMORY IMPAIRMENT [None]
